FAERS Safety Report 6867709-1 (Version None)
Quarter: 2010Q3

REPORT INFORMATION
  Report Type: 
  Country: None (occurrence: None)
  Receive Date: 20100722
  Receipt Date: 20100602
  Transmission Date: 20110219
  Serious: No
  Sender: FDA-Public Use
  Company Number: US-BAUSCH-2010BL002966

PATIENT
  Age: 67 Year
  Sex: Male

DRUGS (2)
  1. OPCON-A [Suspect]
     Indication: OCULAR HYPERAEMIA
     Route: 047
     Dates: start: 20100526, end: 20100529
  2. RENU [Concomitant]
     Indication: CONTACT LENS THERAPY

REACTIONS (2)
  - EYE DISCHARGE [None]
  - OCULAR HYPERAEMIA [None]
